FAERS Safety Report 24977855 (Version 2)
Quarter: 2025Q1

REPORT INFORMATION
  Report Type: Spontaneous
  Country: US (occurrence: US)
  Receive Date: 20250217
  Receipt Date: 20250304
  Transmission Date: 20250408
  Serious: No
  Sender: PFIZER
  Company Number: US-PFIZER INC-PV202500017211

PATIENT
  Sex: Female

DRUGS (6)
  1. IBRANCE [Suspect]
     Active Substance: PALBOCICLIB
     Indication: Breast cancer metastatic
     Dates: start: 201602
  2. IBRANCE [Suspect]
     Active Substance: PALBOCICLIB
  3. FENTANYL [Concomitant]
     Active Substance: FENTANYL
     Indication: Cancer pain
  4. LETROZOLE [Concomitant]
     Active Substance: LETROZOLE
     Indication: Breast cancer metastatic
     Dates: start: 201602
  5. TYLENOL [Concomitant]
     Active Substance: ACETAMINOPHEN
     Indication: Breakthrough pain
  6. ZOMETA [Concomitant]
     Active Substance: ZOLEDRONIC ACID
     Indication: Bone disorder
     Dosage: UNK, EVERY 3 MONTHS

REACTIONS (2)
  - White blood cell count decreased [Not Recovered/Not Resolved]
  - Fatigue [Not Recovered/Not Resolved]
